FAERS Safety Report 8400041-3 (Version None)
Quarter: 2012Q2

REPORT INFORMATION
  Report Type: 
  Country: None (occurrence: None)
  Receive Date: 20120531
  Receipt Date: 20120523
  Transmission Date: 20120825
  Serious: Yes (Other)
  Sender: FDA-Public Use
  Company Number: US-ROCHE-1071701

PATIENT
  Sex: Female

DRUGS (3)
  1. RAMUCIRUMAB [Suspect]
     Dates: start: 20120424, end: 20120508
  2. RAMUCIRUMAB [Suspect]
     Indication: BREAST CANCER
     Route: 042
     Dates: start: 20120222, end: 20120424
  3. XELODA [Suspect]
     Indication: BREAST CANCER
     Dosage: ON DAY 1 TO DAY 14 OF 21 DAY CYCLE
     Route: 048
     Dates: start: 20111011, end: 20120508

REACTIONS (1)
  - HAEMANGIOMA OF SKIN [None]
